FAERS Safety Report 11566884 (Version 2)
Quarter: 2015Q4

REPORT INFORMATION
  Report Type: Spontaneous
  Country: US (occurrence: US)
  Receive Date: 20150916
  Receipt Date: 20151104
  Transmission Date: 20160304
  Serious: No
  Sender: FDA-Public Use
  Company Number: US-ELI_LILLY_AND_COMPANY-US200906006389

PATIENT
  Sex: Male

DRUGS (29)
  1. CYMBALTA [Concomitant]
     Active Substance: DULOXETINE HYDROCHLORIDE
     Indication: INSOMNIA
     Dosage: UNK, UNKNOWN
     Route: 065
  2. OXYCODONE [Concomitant]
     Active Substance: OXYCODONE
     Indication: ARTHRALGIA
  3. TRAVATAN [Concomitant]
     Active Substance: TRAVOPROST
     Indication: GLAUCOMA
  4. ACETAMINOPHEN. [Concomitant]
     Active Substance: ACETAMINOPHEN
     Indication: RHEUMATOID ARTHRITIS
  5. EFUDEX [Concomitant]
     Active Substance: FLUOROURACIL
  6. MULTI-VIT [Concomitant]
     Active Substance: VITAMINS
  7. GRAPE SEED [Concomitant]
  8. METHADONE [Concomitant]
     Active Substance: METHADONE HYDROCHLORIDE
     Indication: RHEUMATOID ARTHRITIS
  9. CALCIUM [Concomitant]
     Active Substance: CALCIUM
  10. TRIAMTERENE AND HYDROCHLOROTHIAZIDE [Concomitant]
     Active Substance: HYDROCHLOROTHIAZIDE\TRIAMTERENE
     Indication: BLOOD PRESSURE ABNORMAL
  11. ASPIRIN. [Concomitant]
     Active Substance: ASPIRIN
     Dosage: 81 MG, UNK
  12. VITAMIN B12 NOS W/VITAMIN B6 [Concomitant]
  13. VITAMIN D3 [Concomitant]
     Active Substance: CHOLECALCIFEROL
  14. FORTEO [Suspect]
     Active Substance: TERIPARATIDE
     Indication: OSTEOPOROSIS
     Dosage: 20 UG, QD
     Route: 065
     Dates: start: 200812, end: 201103
  15. AZOPT [Concomitant]
     Active Substance: BRINZOLAMIDE
     Indication: GLAUCOMA
  16. TESTOSTERONE. [Concomitant]
     Active Substance: TESTOSTERONE
  17. VITAMIN C [Concomitant]
     Active Substance: ASCORBIC ACID
  18. FUROSEMIDE. [Concomitant]
     Active Substance: FUROSEMIDE
     Indication: OEDEMA
  19. FISH OIL [Concomitant]
     Active Substance: FISH OIL
  20. HYDROXYCHLOROQUINE [Concomitant]
     Active Substance: HYDROXYCHLOROQUINE
     Indication: RHEUMATOID ARTHRITIS
  21. POTASSIUM CHLORIDE. [Concomitant]
     Active Substance: POTASSIUM CHLORIDE
     Indication: OEDEMA
  22. TRAZODONE [Concomitant]
     Active Substance: TRAZODONE HYDROCHLORIDE
     Indication: INSOMNIA
  23. VARDENAFIL [Concomitant]
     Active Substance: VARDENAFIL
     Dosage: 20 MG, UNK
  24. COQ10 [Concomitant]
     Active Substance: UBIDECARENONE
     Dosage: 20 MG, UNK
  25. MAGNESIUM [Concomitant]
     Active Substance: MAGNESIUM
  26. BRINZOLAMIDE [Concomitant]
     Active Substance: BRINZOLAMIDE
     Indication: GLAUCOMA
  27. DOXYCYCLINE. [Concomitant]
     Active Substance: DOXYCYCLINE
     Indication: PEMPHIGOID
  28. SYNTHROID [Concomitant]
     Active Substance: LEVOTHYROXINE SODIUM
  29. NIACINAMIDE [Concomitant]
     Active Substance: NIACINAMIDE
     Indication: PEMPHIGOID

REACTIONS (13)
  - Injection site haemorrhage [Recovered/Resolved]
  - Intervertebral disc protrusion [Unknown]
  - Injection site pain [Recovered/Resolved]
  - Back pain [Not Recovered/Not Resolved]
  - Localised oedema [Unknown]
  - Exostosis [Unknown]
  - Pain [Unknown]
  - Compression fracture [Unknown]
  - Frustration [Unknown]
  - Vertebral foraminal stenosis [Unknown]
  - Cervical spinal stenosis [Unknown]
  - Stress fracture [Unknown]
  - Ligament operation [Unknown]
